FAERS Safety Report 19355657 (Version 3)
Quarter: 2021Q2

REPORT INFORMATION
  Report Type: Spontaneous
  Country: CA (occurrence: CA)
  Receive Date: 20210601
  Receipt Date: 20210611
  Transmission Date: 20210717
  Serious: Yes (Disabling)
  Sender: FDA-Public Use
  Company Number: CA-CELLTRION INC.-2021CA007333

PATIENT

DRUGS (2)
  1. INFLECTRA [Suspect]
     Active Substance: INFLIXIMAB-DYYB
     Dosage: 600 MG AT 0, 2, 6 WEEK THEN EVERY 8 WEEKS
     Route: 042
     Dates: start: 20210527, end: 20210527
  2. INFLECTRA [Suspect]
     Active Substance: INFLIXIMAB-DYYB
     Indication: CROHN^S DISEASE
     Dosage: 600 MG AT 0, 2, 6 WEEK THEN EVERY 8 WEEKS
     Route: 042
     Dates: start: 20210503, end: 20210503

REACTIONS (25)
  - Off label use [Unknown]
  - Inappropriate schedule of product administration [Unknown]
  - Dyspnoea [Unknown]
  - Hypoaesthesia [Recovered/Resolved]
  - Infusion related reaction [Unknown]
  - Tachypnoea [Recovered/Resolved]
  - Arthralgia [Unknown]
  - Nasal congestion [Recovered/Resolved]
  - Flushing [Recovered/Resolved]
  - Nausea [Unknown]
  - Intentional product use issue [Unknown]
  - Chest discomfort [Recovered/Resolved]
  - Immobile [Unknown]
  - General physical health deterioration [Unknown]
  - Throat irritation [Unknown]
  - Pruritus [Recovered/Resolved]
  - Lacrimation increased [Unknown]
  - Fatigue [Unknown]
  - Pain [Unknown]
  - Myalgia [Unknown]
  - Dizziness [Recovered/Resolved]
  - Erythema [Recovered/Resolved]
  - Fistula [Unknown]
  - Abdominal pain upper [Recovering/Resolving]
  - Erythema [Not Recovered/Not Resolved]

NARRATIVE: CASE EVENT DATE: 202105
